FAERS Safety Report 6611324-1 (Version None)
Quarter: 2010Q1

REPORT INFORMATION
  Report Type: 
  Country: None (occurrence: None)
  Receive Date: 20100301
  Receipt Date: 20100301
  Transmission Date: 20100710
  Serious: Yes (Other)
  Sender: FDA-Public Use
  Company Number: None

PATIENT
  Sex: Male
  Weight: 56.6996 kg

DRUGS (1)
  1. TERAZOSIN HCL [Suspect]
     Dosage: 1 CAP AT BEDTIME PO
     Route: 048
     Dates: start: 20100115, end: 20100227

REACTIONS (2)
  - BREAST MASS [None]
  - BREAST PAIN [None]
